FAERS Safety Report 7199476-9 (Version None)
Quarter: 2010Q4

REPORT INFORMATION
  Report Type: 
  Country: None (occurrence: None)
  Receive Date: 20101228
  Receipt Date: 20101214
  Transmission Date: 20110411
  Serious: Yes (Hospitalization, Other)
  Sender: FDA-Public Use
  Company Number: PHHY2010DE75084

PATIENT
  Sex: Female
  Weight: 118 kg

DRUGS (15)
  1. ZOLEDRONATE [Suspect]
     Indication: PROPHYLAXIS
     Dosage: 4 MG EVERY 4 WEEKS
     Route: 042
     Dates: start: 20100730
  2. SIMVASTATIN [Suspect]
     Indication: HYPERCHOLESTEROLAEMIA
     Dosage: 60 MG, UNK
     Route: 048
     Dates: end: 20100724
  3. ENALAPRIL MALEATE [Suspect]
     Indication: HYPERTENSION
     Dosage: 20 MG, UNK
     Route: 048
  4. DICLOFENAC [Concomitant]
     Indication: PAIN
     Dosage: 100 MG/DAY
     Route: 048
     Dates: start: 20100809
  5. MARCUMAR [Concomitant]
     Indication: PULMONARY EMBOLISM
     Dosage: 3 MG/DAY
     Route: 048
     Dates: start: 20061015
  6. AMLODIPIN ^ORIFARM^ [Concomitant]
     Indication: HYPERTENSION
     Dosage: 5 MG/DAY
     Route: 048
  7. FENTANYL [Concomitant]
     Indication: PAIN
     Dosage: UNK
     Route: 048
     Dates: start: 20100701
  8. CARBIDOPA + LEVODOPA [Concomitant]
     Indication: RESTLESS LEGS SYNDROME
     Dosage: 200 MG/50 MG/DAY
  9. PANTOZOL [Concomitant]
     Dosage: 20 MG/DAY
     Route: 048
  10. REQUIP [Concomitant]
     Dosage: 0.25MG/DAY
     Route: 048
  11. JODID 200 [Concomitant]
     Dosage: 200 UG/DAY
     Route: 048
  12. SAROTEN ^BAYER VITAL^ [Concomitant]
     Dosage: 25 MG/DAY
     Dates: start: 20100101, end: 20100801
  13. LYRICA [Concomitant]
     Dosage: 25 MG/DAY
     Dates: start: 20100101, end: 20100801
  14. NOVALGIN [Concomitant]
     Dosage: UNK
     Dates: start: 20100101
  15. IBUPROFEN [Concomitant]
     Dosage: 800 MG/DAY

REACTIONS (3)
  - CHEST PAIN [None]
  - DYSPNOEA [None]
  - SPINAL OSTEOARTHRITIS [None]
